FAERS Safety Report 24387724 (Version 1)
Quarter: 2024Q4

REPORT INFORMATION
  Report Type: Spontaneous
  Country: US (occurrence: US)
  Receive Date: 20241002
  Receipt Date: 20241002
  Transmission Date: 20250115
  Serious: Yes (Hospitalization)
  Sender: AEGERION
  Company Number: US-CHIESI LTD.-AEGR007247

PATIENT
  Sex: Male

DRUGS (1)
  1. MYALEPT [Suspect]
     Active Substance: METRELEPTIN
     Indication: Partial lipodystrophy
     Dosage: 11.3 MILLIGRAM
     Route: 058

REACTIONS (2)
  - Myocardial necrosis marker increased [Unknown]
  - Off label use [Unknown]
